FAERS Safety Report 6193597-5 (Version None)
Quarter: 2009Q2

REPORT INFORMATION
  Report Type: 
  Country: None (occurrence: None)
  Receive Date: 20090518
  Receipt Date: 20090511
  Transmission Date: 20091009
  Serious: Yes (Death)
  Sender: FDA-Public Use
  Company Number: FR-CELGENEUS-056-20785-09031577

PATIENT
  Sex: Female
  Weight: 43 kg

DRUGS (6)
  1. THALIDOMIDE [Suspect]
     Indication: MULTIPLE MYELOMA
     Route: 048
     Dates: start: 20090126, end: 20090313
  2. TRIATEC [Concomitant]
     Route: 048
     Dates: end: 20090314
  3. NICARDIPINE HCL [Concomitant]
     Route: 048
     Dates: end: 20090314
  4. LASIX [Concomitant]
     Route: 048
     Dates: start: 20090203, end: 20090314
  5. PREDNISONE [Concomitant]
     Route: 048
     Dates: start: 20090303, end: 20090306
  6. ALKERAN [Concomitant]
     Route: 048
     Dates: start: 20090303, end: 20090306

REACTIONS (2)
  - DRUG INEFFECTIVE [None]
  - RENAL FAILURE [None]
